FAERS Safety Report 14753192 (Version 2)
Quarter: 2018Q2

REPORT INFORMATION
  Report Type: Spontaneous
  Country: US (occurrence: US)
  Receive Date: 20180412
  Receipt Date: 20180418
  Transmission Date: 20180711
  Serious: Yes (Other)
  Sender: FDA-Public Use
  Company Number: US-SA-2018SA105419

PATIENT
  Age: 86 Year
  Sex: Female

DRUGS (3)
  1. NOVOLOG [Concomitant]
     Active Substance: INSULIN ASPART
     Dosage: BEFORE MEALS
     Route: 065
  2. SOLOSTAR [Suspect]
     Active Substance: DEVICE
  3. LANTUS SOLOSTAR [Suspect]
     Active Substance: INSULIN GLARGINE
     Indication: TYPE 2 DIABETES MELLITUS
     Dosage: DOSE:20 UNIT(S)
     Route: 051

REACTIONS (8)
  - Visual impairment [Unknown]
  - Product use issue [Unknown]
  - Hyperhidrosis [Unknown]
  - Blood glucose fluctuation [Unknown]
  - Cerebrovascular accident [Unknown]
  - Device use issue [Unknown]
  - Blood glucose decreased [Unknown]
  - Tremor [Unknown]

NARRATIVE: CASE EVENT DATE: 2009
